FAERS Safety Report 5338913-9 (Version None)
Quarter: 2007Q2

REPORT INFORMATION
  Report Type: 
  Country: None (occurrence: None)
  Receive Date: 20070404
  Receipt Date: 20070109
  Transmission Date: 20071010
  Serious: Yes (Other)
  Sender: FDA-Public Use
  Company Number: HQWYE034210JAN07

PATIENT
  Age: 28 Year
  Sex: Female
  Weight: 52.21 kg

DRUGS (3)
  1. ALAVERT [Suspect]
     Indication: NASAL CONGESTION
     Dosage: 1 TABLET 2X PER 1 DAY, ORAL
     Route: 048
     Dates: start: 20070104, end: 20070104
  2. ALAVERT [Suspect]
     Indication: RHINORRHOEA
     Dosage: 1 TABLET 2X PER 1 DAY, ORAL
     Route: 048
     Dates: start: 20070104, end: 20070104
  3. ALAVERT [Suspect]
     Indication: SNEEZING
     Dosage: 1 TABLET 2X PER 1 DAY, ORAL
     Route: 048
     Dates: start: 20070104, end: 20070104

REACTIONS (5)
  - DECREASED APPETITE [None]
  - FEELING JITTERY [None]
  - NAUSEA [None]
  - SOMNOLENCE [None]
  - STOMACH DISCOMFORT [None]
